FAERS Safety Report 9099480 (Version 6)
Quarter: 2015Q4

REPORT INFORMATION
  Report Type: Report from Study
  Country: GB (occurrence: GB)
  Receive Date: 20130214
  Receipt Date: 20151204
  Transmission Date: 20160305
  Serious: Yes (Hospitalization)
  Sender: FDA-Public Use
  Company Number: GB-ROCHE-1177209

PATIENT
  Age: 63 Year
  Sex: Male
  Weight: 85.7 kg

DRUGS (15)
  1. PIRITON [Concomitant]
     Active Substance: CHLORPHENIRAMINE MALEATE
     Route: 065
     Dates: start: 20130103, end: 20130105
  2. HYDROCORTISONE. [Concomitant]
     Active Substance: HYDROCORTISONE
     Route: 065
     Dates: start: 20121031, end: 20121128
  3. RITUXIMAB [Suspect]
     Active Substance: RITUXIMAB
     Indication: B-CELL LYMPHOMA
     Dosage: DATE OF LAST DOSE PRIOR TO SAE WAS ON 31/DEC/2012
     Route: 058
     Dates: start: 20121231
  4. RITUXIMAB [Suspect]
     Active Substance: RITUXIMAB
     Indication: B-CELL LYMPHOMA
     Route: 042
     Dates: start: 20121031
  5. RITUXIMAB [Suspect]
     Active Substance: RITUXIMAB
     Route: 042
     Dates: start: 20121128
  6. PIRITON [Concomitant]
     Active Substance: CHLORPHENIRAMINE MALEATE
     Route: 065
     Dates: start: 20121031, end: 20121128
  7. HYDROCORTISONE. [Concomitant]
     Active Substance: HYDROCORTISONE
     Route: 065
     Dates: start: 20121130, end: 20121130
  8. EUMOVATE [Concomitant]
     Active Substance: CLOBETASONE BUTYRATE
  9. GENTAMICIN. [Concomitant]
     Active Substance: GENTAMICIN
     Route: 065
     Dates: start: 20130103, end: 20130103
  10. GENTAMICIN. [Concomitant]
     Active Substance: GENTAMICIN
     Route: 065
     Dates: start: 20121129, end: 20121129
  11. LACTULOSE. [Concomitant]
     Active Substance: LACTULOSE
     Route: 065
     Dates: start: 20130103, end: 20130106
  12. TAZOCIN [Concomitant]
     Active Substance: PIPERACILLIN SODIUM\TAZOBACTAM SODIUM
     Route: 065
     Dates: start: 20121129, end: 20121130
  13. PIRITON [Concomitant]
     Active Substance: CHLORPHENIRAMINE MALEATE
     Route: 065
     Dates: start: 20121130, end: 20121130
  14. LACTULOSE. [Concomitant]
     Active Substance: LACTULOSE
     Indication: CONSTIPATION
     Route: 065
     Dates: start: 20130104, end: 20130106
  15. LACTULOSE. [Concomitant]
     Active Substance: LACTULOSE
     Route: 065
     Dates: start: 20121130, end: 20121130

REACTIONS (1)
  - Injection site haematoma [Recovered/Resolved with Sequelae]

NARRATIVE: CASE EVENT DATE: 20130103
